FAERS Safety Report 6199965-X (Version None)
Quarter: 2009Q2

REPORT INFORMATION
  Report Type: 
  Country: None (occurrence: None)
  Receive Date: 20090522
  Receipt Date: 20090514
  Transmission Date: 20091009
  Serious: Yes (Life-Threatening, Hospitalization)
  Sender: FDA-Public Use
  Company Number: JP-TYCO HEALTHCARE/MALLINCKRODT-T200900943

PATIENT
  Age: 81 Year
  Sex: Female
  Weight: 42 kg

DRUGS (14)
  1. OPTIRAY 300 [Suspect]
     Indication: COMPUTERISED TOMOGRAM ABDOMEN
     Dosage: 100 ML, SINGLE
     Route: 042
     Dates: start: 20090427, end: 20090427
  2. OPTIRAY 300 [Suspect]
     Indication: COMPUTERISED TOMOGRAM THORAX
  3. ASPIRIN [Concomitant]
     Dosage: 100 MG, QD
     Route: 048
  4. ATENOLOL [Concomitant]
     Dosage: UNK
     Route: 048
  5. DILTIAZEM HCL [Concomitant]
     Dosage: 100 MG, QD
     Route: 048
  6. DIPHENHYDRAMINE HYDROCHLORIDE [Concomitant]
     Dosage: 5 TABS FORTNIGHTLY AFTER FIRST DOSE, WEEKLY AFTER SECOND DOSE
     Dates: start: 20090323, end: 20090420
  7. MAGNESIUM OXIDE [Concomitant]
     Dosage: 330 MG, TID AT ODD INTERVAL
     Route: 048
     Dates: start: 20090323
  8. DAI-KENCHU-TO [Concomitant]
     Dosage: 2.5 G, TID
     Dates: start: 20090323, end: 20090329
  9. DEXAMETHASONE SODIUM PHOSPHATE [Concomitant]
     Dosage: FORTNIGHTLY AFTER FIRST DOSE, WEEKLY AFTER SECOND DOSE
     Route: 042
     Dates: start: 20090323, end: 20090420
  10. FAMOTIDINE [Concomitant]
     Dosage: FORTNIGHTLY AFTER FIRST DOSE, WEEKLY AFTER SECOND DOSE
     Route: 042
     Dates: start: 20090323, end: 20090420
  11. GRANISETRON HYDROCHLORIDE [Concomitant]
     Dosage: FORTNIGHTLY AFTER FIRST DOSE, WEEKLY AFTER SECOND DOSE
     Route: 042
     Dates: start: 20090323, end: 20090420
  12. PACLITAXEL [Concomitant]
     Indication: OVARIAN CANCER
     Dosage: FORTNIGHTLY AFTER FIRST DOSE, WEEKLY AFTER SECOND DOSE
     Route: 042
     Dates: start: 20090323, end: 20090420
  13. CARBOPLATIN [Concomitant]
     Indication: OVARIAN CANCER
     Dosage: FORTNIGHTLY AFTER FIRST DOSE, WEEKLY AFTER SECOND DOSE
     Route: 042
     Dates: start: 20090323, end: 20090420
  14. SALINE                             /00075401/ [Concomitant]
     Dosage: UNK
     Route: 042
     Dates: start: 20090323

REACTIONS (4)
  - DYSGEUSIA [None]
  - HYPOAESTHESIA [None]
  - SHOCK [None]
  - TREMOR [None]
